FAERS Safety Report 14434330 (Version 2)
Quarter: 2022Q3

REPORT INFORMATION
  Report Type: Spontaneous
  Country: US (occurrence: US)
  Receive Date: 20180124
  Receipt Date: 20220907
  Transmission Date: 20221026
  Serious: Yes (Disabling)
  Sender: FDA-Public Use
  Company Number: US-TEVA-2018-US-850280

PATIENT
  Age: 59 Year
  Sex: Female

DRUGS (21)
  1. DOCETAXEL [Suspect]
     Active Substance: DOCETAXEL
     Indication: Breast cancer female
     Dosage: 150 MG (75 MG/M2)
     Route: 041
     Dates: start: 20150106, end: 20150106
  2. DOCETAXEL [Suspect]
     Active Substance: DOCETAXEL
     Dosage: 150 MG (75 MG/M2)
     Route: 041
     Dates: start: 20150128, end: 20150128
  3. CARBOPLATIN [Suspect]
     Active Substance: CARBOPLATIN
     Indication: Breast cancer female
     Route: 042
     Dates: start: 20150106, end: 20150421
  4. DOCETAXEL [Suspect]
     Active Substance: DOCETAXEL
     Indication: Breast cancer female
     Dosage: 150 MG (75 MG/M2)
     Route: 041
     Dates: start: 20150331, end: 20150331
  5. DOCETAXEL [Suspect]
     Active Substance: DOCETAXEL
     Dosage: 150 MG (75 MG/M2)
     Route: 041
     Dates: start: 20150421, end: 20150421
  6. DOCETAXEL [Suspect]
     Active Substance: DOCETAXEL
     Dosage: 150 MG (75 MG/M2)
     Route: 041
     Dates: start: 20150106, end: 20150421
  7. DOCETAXEL [Suspect]
     Active Substance: DOCETAXEL
     Dosage: 150 MG (75 MG/M2)
     Route: 041
     Dates: start: 20150106, end: 20150421
  8. DOCETAXEL [Suspect]
     Active Substance: DOCETAXEL
     Dosage: 150 MG (75 MG/M2)
     Route: 041
     Dates: start: 20150106, end: 20150421
  9. DOCETAXEL [Suspect]
     Active Substance: DOCETAXEL
     Dosage: 150 MG (75 MG/M2)
     Route: 041
     Dates: start: 20150106, end: 20150421
  10. DOCETAXEL [Suspect]
     Active Substance: DOCETAXEL
     Dosage: 150 MG (75 MG/M2)
     Route: 041
     Dates: start: 20150106, end: 20150421
  11. DOCETAXEL [Suspect]
     Active Substance: DOCETAXEL
     Indication: Breast cancer female
     Dosage: 150 MG (75 MG/M2)
     Route: 041
     Dates: start: 20150217, end: 20150217
  12. DOCETAXEL [Suspect]
     Active Substance: DOCETAXEL
     Dosage: 150 MG (75 MG/M2)
     Route: 041
     Dates: start: 20150310, end: 20150310
  13. PERJETA [Suspect]
     Active Substance: PERTUZUMAB
     Indication: Breast cancer female
     Dosage: 420MG
     Route: 041
     Dates: start: 20150106, end: 20150421
  14. HERCEPTIN [Suspect]
     Active Substance: TRASTUZUMAB
     Indication: Breast cancer female
     Dosage: 500MG
     Route: 041
     Dates: start: 20150106, end: 20150421
  15. SYNTHROID [Concomitant]
     Active Substance: LEVOTHYROXINE SODIUM
     Indication: Hypothyroidism
     Dosage: UNTIL PRESENT
     Route: 048
     Dates: start: 200110
  16. ONDANSETRON [Concomitant]
     Active Substance: ONDANSETRON
     Indication: Premedication
     Dosage: 16 MG
     Route: 042
  17. DEXAMETHASONE [Concomitant]
     Active Substance: DEXAMETHASONE
     Indication: Premedication
     Dosage: 10 MG
     Route: 042
  18. FAMOTIDINE [Concomitant]
     Active Substance: FAMOTIDINE
     Indication: Premedication
     Dosage: 20 MG
     Route: 042
  19. DIPHENHYDRAMINE [Concomitant]
     Active Substance: DIPHENHYDRAMINE
     Indication: Premedication
     Dosage: 2.5 MG
     Route: 042
  20. FOSAPREPITANT [Concomitant]
     Active Substance: FOSAPREPITANT
     Indication: Premedication
     Dosage: 150 MG
     Route: 042
  21. PEGFILGRASTIM [Concomitant]
     Active Substance: PEGFILGRASTIM
     Indication: Product used for unknown indication
     Dosage: 6MG/0.6ML
     Route: 058
     Dates: start: 20150106

REACTIONS (4)
  - Alopecia areata [Not Recovered/Not Resolved]
  - Madarosis [Not Recovered/Not Resolved]
  - Hair texture abnormal [Not Recovered/Not Resolved]
  - Hair colour changes [Not Recovered/Not Resolved]

NARRATIVE: CASE EVENT DATE: 20151001
